FAERS Safety Report 22534455 (Version 1)
Quarter: 2023Q2

REPORT INFORMATION
  Report Type: Spontaneous
  Country: FR (occurrence: FR)
  Receive Date: 20230608
  Receipt Date: 20230608
  Transmission Date: 20230722
  Serious: Yes (Other)
  Sender: FDA-Public Use
  Company Number: FR-AFSSAPS-GR2023000721

PATIENT
  Age: 61 Year
  Sex: Male
  Weight: 70 kg

DRUGS (2)
  1. QUETIAPINE [Suspect]
     Active Substance: QUETIAPINE
     Indication: Agitation
     Dosage: 50 MILLIGRAM (0.0.1)
     Route: 048
     Dates: start: 2019, end: 20221110
  2. DONEPEZIL [Concomitant]
     Active Substance: DONEPEZIL
     Indication: Dementia Alzheimer^s type
     Dosage: UNK
     Route: 065
     Dates: start: 2016, end: 2020

REACTIONS (1)
  - Dystonia [Recovered/Resolved]

NARRATIVE: CASE EVENT DATE: 20221110
